FAERS Safety Report 5269758-6 (Version None)
Quarter: 2007Q1

REPORT INFORMATION
  Report Type: 
  Country: None (occurrence: None)
  Receive Date: 20070320
  Receipt Date: 20070309
  Transmission Date: 20070707
  Serious: Yes (Other)
  Sender: FDA-Public Use
  Company Number: GR-ROCHE-487127

PATIENT
  Sex: Female

DRUGS (4)
  1. BONVIVA [Suspect]
     Indication: OSTEOPOROSIS
     Route: 048
     Dates: start: 20070302
  2. CALCIORAL [Concomitant]
     Indication: OSTEOPOROSIS
  3. IRON SUPPLEMENT NOS [Concomitant]
  4. 1 CONCOMITANT DRUG [Concomitant]
     Indication: HYPOTHYROIDISM
     Dosage: DRUG REPORTED AS 'DRUGS NOS'

REACTIONS (4)
  - ABDOMINAL PAIN [None]
  - DIARRHOEA [None]
  - NAUSEA [None]
  - VOMITING [None]
